FAERS Safety Report 17145295 (Version 2)
Quarter: 2019Q4

REPORT INFORMATION
  Report Type: Spontaneous
  Country: US (occurrence: US)
  Receive Date: 20191212
  Receipt Date: 20191217
  Transmission Date: 20200122
  Serious: Yes (Other)
  Sender: FDA-Public Use
  Company Number: US-COOPERSURGICAL, INC.-US-2019CPS003761

PATIENT
  Age: 25 Year
  Sex: Female

DRUGS (1)
  1. PARAGARD T 380A [Suspect]
     Active Substance: COPPER
     Indication: PRODUCT USED FOR UNKNOWN INDICATION
     Dosage: UNK
     Route: 015
     Dates: start: 20170315, end: 20191205

REACTIONS (10)
  - Device dislocation [Recovered/Resolved]
  - Back pain [Unknown]
  - Pelvic pain [Unknown]
  - Abortion missed [Recovered/Resolved]
  - Complication of device removal [Recovered/Resolved]
  - Pregnancy with contraceptive device [Recovered/Resolved]
  - Abdominal pain [Unknown]
  - Metrorrhagia [Unknown]
  - Nausea [Unknown]
  - Drug ineffective [Unknown]

NARRATIVE: CASE EVENT DATE: 201911
